FAERS Safety Report 5367080-0 (Version None)
Quarter: 2007Q2

REPORT INFORMATION
  Report Type: 
  Country: None (occurrence: None)
  Receive Date: 20070622
  Receipt Date: 20070614
  Transmission Date: 20071010
  Serious: Yes (Other)
  Sender: FDA-Public Use
  Company Number: B0476185A

PATIENT
  Age: 35 Year
  Sex: Female
  Weight: 92 kg

DRUGS (1)
  1. SERETIDE DISKUS [Suspect]
     Indication: ASTHMA
     Dosage: 1PUFF TWICE PER DAY
     Route: 055
     Dates: end: 20070301

REACTIONS (10)
  - ARTHROPATHY [None]
  - CUSHING'S SYNDROME [None]
  - CUSHINGOID [None]
  - FAT REDISTRIBUTION [None]
  - HYPERCHOLESTEROLAEMIA [None]
  - HYPERINSULINISM [None]
  - HYPERTENSION [None]
  - ILL-DEFINED DISORDER [None]
  - LIPOHYPERTROPHY [None]
  - WEIGHT INCREASED [None]
